FAERS Safety Report 5108115-X (Version None)
Quarter: 2006Q3

REPORT INFORMATION
  Report Type: 
  Country: None (occurrence: None)
  Receive Date: 20060919
  Receipt Date: 20060914
  Transmission Date: 20061208
  Serious: Yes (Other)
  Sender: FDA-Public Use
  Company Number: CA-GLAXOSMITHKLINE-A0620372A

PATIENT
  Age: 20 Year
  Sex: Female

DRUGS (1)
  1. VENTOLIN [Suspect]
     Indication: MULTIPLE ALLERGIES
     Dosage: 2PUFF UNKNOWN
     Route: 055
     Dates: start: 20060808

REACTIONS (9)
  - CHEST DISCOMFORT [None]
  - CRYING [None]
  - DRUG INEFFECTIVE [None]
  - EUPHORIC MOOD [None]
  - HYPERSENSITIVITY [None]
  - INAPPROPRIATE AFFECT [None]
  - INCOHERENT [None]
  - MYDRIASIS [None]
  - RESPIRATORY DISTRESS [None]
